FAERS Safety Report 26000089 (Version 1)
Quarter: 2025Q4

REPORT INFORMATION
  Report Type: Spontaneous
  Country: AU (occurrence: AU)
  Receive Date: 20251105
  Receipt Date: 20251105
  Transmission Date: 20260118
  Serious: Yes (Hospitalization, Other)
  Sender: RANBAXY
  Company Number: AU-SUN PHARMACEUTICAL INDUSTRIES LTD-2025R1-534729

PATIENT
  Age: 73 Year
  Sex: Male

DRUGS (10)
  1. DOXORUBICIN [Suspect]
     Active Substance: DOXORUBICIN
     Indication: Follicular lymphoma
     Dosage: 88 MILLIGRAM, INTERVAL: 1 MONTH
     Route: 042
     Dates: start: 20250313, end: 20250626
  2. PREDNISONE [Suspect]
     Active Substance: PREDNISONE
     Indication: Follicular lymphoma
     Dosage: 100 MILLIGRAM, INTERVAL: 1 MONTH
     Route: 042
     Dates: start: 20250313, end: 20250630
  3. CYCLOPHOSPHAMIDE [Suspect]
     Active Substance: CYCLOPHOSPHAMIDE
     Indication: Follicular lymphoma
     Dosage: 1313 MILLIGRAM, INTERVAL: 1 MONTH
     Route: 042
     Dates: start: 20250313, end: 20250626
  4. ODRONEXTAMAB [Suspect]
     Active Substance: ODRONEXTAMAB
     Indication: Follicular lymphoma
     Dosage: 0.7 MILLIGRAM,INTERVAL: 1 TOTAL
     Route: 042
     Dates: start: 20250320, end: 20250321
  5. ODRONEXTAMAB [Suspect]
     Active Substance: ODRONEXTAMAB
     Dosage: 4 MILLIGRAM, INTERVAL: 1 TOTAL
     Route: 042
     Dates: start: 20250327, end: 20250327
  6. ODRONEXTAMAB [Suspect]
     Active Substance: ODRONEXTAMAB
     Dosage: 20 MILLIGRAM, INTERVAL: 1 TOTAL
     Route: 042
     Dates: start: 20250403, end: 20250404
  7. ODRONEXTAMAB [Suspect]
     Active Substance: ODRONEXTAMAB
     Dosage: 160 MILLIGRAM, INTERVAL: 1 TOTAL
     Route: 042
     Dates: start: 20250417, end: 20250424
  8. ODRONEXTAMAB [Suspect]
     Active Substance: ODRONEXTAMAB
     Dosage: 160 MILLIGRAM, INTERVAL: 1 TOTAL
     Route: 042
     Dates: start: 20250605, end: 20250626
  9. ODRONEXTAMAB [Suspect]
     Active Substance: ODRONEXTAMAB
     Dosage: 320 MILLIGRAM, INTERVAL: 1 WEEK
     Route: 042
     Dates: start: 20250703
  10. VINCRISTINE [Suspect]
     Active Substance: VINCRISTINE
     Indication: Follicular lymphoma
     Dosage: 2 MILLIGRAM, INTERVAL: 1 MONTH
     Route: 042
     Dates: start: 20250313, end: 20250626

REACTIONS (2)
  - Rash [Not Recovered/Not Resolved]
  - Cytomegalovirus infection reactivation [Recovered/Resolved]

NARRATIVE: CASE EVENT DATE: 20250430
